FAERS Safety Report 25022184 (Version 1)
Quarter: 2025Q1

REPORT INFORMATION
  Report Type: Report from Study
  Country: ES (occurrence: ES)
  Receive Date: 20250228
  Receipt Date: 20250228
  Transmission Date: 20250408
  Serious: Yes (Other)
  Sender: ROCHE
  Company Number: None

PATIENT
  Age: 6 Decade
  Sex: Male

DRUGS (3)
  1. RITUXIMAB [Suspect]
     Active Substance: RITUXIMAB
     Indication: Granulomatous lymphadenitis
     Dosage: 375 MG/M2, WEEKLY
     Route: 065
  2. RITUXIMAB [Suspect]
     Active Substance: RITUXIMAB
     Dosage: 375 MG/M2, MONTHLY
     Route: 065
  3. BENDAMUSTINE [Suspect]
     Active Substance: BENDAMUSTINE
     Indication: Granulomatous lymphadenitis
     Route: 065

REACTIONS (4)
  - Pancytopenia [Unknown]
  - Subcutaneous abscess [Unknown]
  - Bacterial infection [Unknown]
  - Septic shock [Unknown]
